FAERS Safety Report 4400970-1 (Version None)
Quarter: 2004Q3

REPORT INFORMATION
  Report Type: 
  Country: None (occurrence: None)
  Receive Date: 20040907
  Receipt Date: 20030829
  Transmission Date: 20050211
  Serious: No
  Sender: FDA-Public Use
  Company Number: US-BRISTOL-MYERS SQUIBB COMPANY-12369237

PATIENT
  Age: 75 Year
  Sex: Female
  Weight: 63 kg

DRUGS (10)
  1. COUMADIN [Suspect]
     Indication: ATRIAL FIBRILLATION
     Dosage: DURATION OF THERAPY: COUPLE OF MONTHS. CURRENT DOSE (2) 2 MG TABS X 2 WEEKS.
     Route: 048
  2. COUMADIN [Suspect]
     Dosage: DURATION OF THERAPY:  COUPLE OF MONTHS.
     Route: 048
  3. TAMBOCOR [Concomitant]
  4. DIFLUCAN [Concomitant]
  5. CENTRUM [Concomitant]
  6. ONE-A-DAY [Concomitant]
  7. FOSAMAX [Concomitant]
  8. CALCIUM [Concomitant]
  9. VITAMIN C [Concomitant]
  10. VITAMIN E [Concomitant]

REACTIONS (6)
  - CAPILLARY DISORDER [None]
  - GINGIVITIS [None]
  - INTERNATIONAL NORMALISED RATIO INCREASED [None]
  - PROTHROMBIN TIME ABNORMAL [None]
  - RASH [None]
  - STOMATITIS [None]
